FAERS Safety Report 20562209 (Version 1)
Quarter: 2022Q1

REPORT INFORMATION
  Report Type: Spontaneous
  Country: US (occurrence: None)
  Receive Date: 20220304
  Receipt Date: 20220304
  Transmission Date: 20220423
  Serious: Yes (Life-Threatening, Hospitalization)
  Sender: FDA-Public Use
  Company Number: None

PATIENT
  Age: 73 Year
  Sex: Female
  Weight: 56.7 kg

DRUGS (16)
  1. VIBERZI [Suspect]
     Active Substance: ELUXADOLINE
     Indication: Diarrhoea
     Route: 048
     Dates: start: 20210901, end: 20211001
  2. VIBERZI [Suspect]
     Active Substance: ELUXADOLINE
     Indication: Irritable bowel syndrome
  3. LEVOTHYROXINE [Concomitant]
     Active Substance: LEVOTHYROXINE
  4. ECOTRIN [Concomitant]
     Active Substance: ASPIRIN
  5. FAMOTIDINE [Concomitant]
     Active Substance: FAMOTIDINE
  6. HYOSCYAMINE SULFATE [Concomitant]
     Active Substance: HYOSCYAMINE SULFATE
  7. NIACINAMIDE [Concomitant]
     Active Substance: NIACINAMIDE
  8. VITAMIN D3 [Concomitant]
     Active Substance: CHOLECALCIFEROL
  9. Estradiol Norte [Concomitant]
  10. METOPROLOL SUCCINATE [Concomitant]
     Active Substance: METOPROLOL SUCCINATE
  11. BACLOFEN [Concomitant]
     Active Substance: BACLOFEN
  12. Centrum Mini [Concomitant]
  13. Florajen Probiotic [Concomitant]
  14. FLUTICASONE [Concomitant]
     Active Substance: FLUTICASONE
  15. MELATONIN [Concomitant]
     Active Substance: MELATONIN
  16. OTC dry eye drop PF [Concomitant]

REACTIONS (6)
  - Cholecystectomy [None]
  - Abdominal distension [None]
  - Flatulence [None]
  - Blood sodium decreased [None]
  - Blood potassium decreased [None]
  - Cerebrovascular accident [None]

NARRATIVE: CASE EVENT DATE: 20211019
